FAERS Safety Report 5202167-4 (Version None)
Quarter: 2007Q1

REPORT INFORMATION
  Report Type: 
  Country: None (occurrence: None)
  Receive Date: 20070109
  Receipt Date: 20070103
  Transmission Date: 20070707
  Serious: Yes (Death)
  Sender: FDA-Public Use
  Company Number: 2006UW23584

PATIENT
  Age: 15804 Day
  Sex: Female
  Weight: 65.5 kg

DRUGS (1)
  1. SEROQUEL [Suspect]
     Route: 048

REACTIONS (6)
  - COMPLETED SUICIDE [None]
  - DRUG TOXICITY [None]
  - OVERDOSE [None]
  - POISONING [None]
  - PULMONARY CONGESTION [None]
  - PULMONARY OEDEMA [None]
